FAERS Safety Report 7410144-8 (Version None)
Quarter: 2011Q2

REPORT INFORMATION
  Report Type: 
  Country: None (occurrence: None)
  Receive Date: 20110412
  Receipt Date: 20110330
  Transmission Date: 20111010
  Serious: Yes (Other)
  Sender: FDA-Public Use
  Company Number: US-MYLANLABS-2011S1006818

PATIENT
  Age: 75 Year
  Sex: Male

DRUGS (2)
  1. SORAFENIB [Interacting]
     Indication: METASTATIC MALIGNANT MELANOMA
     Dosage: 7D BEFORE AND 7D AFTER ILI WITH MELPHALAN
     Route: 048
  2. MELPHALAN [Suspect]
     Indication: METASTATIC MALIGNANT MELANOMA
     Dosage: TREATMENT DAY 8
     Route: 065

REACTIONS (2)
  - DRUG INTERACTION [None]
  - SQUAMOUS CELL CARCINOMA [None]
